FAERS Safety Report 18340039 (Version 1)
Quarter: 2020Q4

REPORT INFORMATION
  Report Type: Spontaneous
  Country: NL (occurrence: NL)
  Receive Date: 20201002
  Receipt Date: 20201002
  Transmission Date: 20210113
  Serious: Yes (Other)
  Sender: FDA-Public Use
  Company Number: NL-MYLANLABS-2020M1083583

PATIENT
  Age: 58 Year
  Sex: Female
  Weight: 119 kg

DRUGS (1)
  1. ESCITALOPRAM [Suspect]
     Active Substance: ESCITALOPRAM OXALATE
     Indication: ANXIETY
     Dosage: 10 MILLIGRAM, QD (1 X PD 2 STUKS)
     Dates: start: 2020, end: 20200630

REACTIONS (4)
  - Suicidal ideation [Recovering/Resolving]
  - Therapeutic response unexpected [Recovering/Resolving]
  - Weight increased [Not Recovered/Not Resolved]
  - Depressed mood [Recovering/Resolving]

NARRATIVE: CASE EVENT DATE: 20200630
